FAERS Safety Report 15775649 (Version 1)
Quarter: 2018Q4

REPORT INFORMATION
  Report Type: Spontaneous
  Country: US (occurrence: US)
  Receive Date: 20181231
  Receipt Date: 20181231
  Transmission Date: 20190205
  Serious: No
  Sender: FDA-Public Use
  Company Number: US-DRREDDYS-USA/USA/18/0096197

PATIENT
  Age: 47 Year
  Sex: Female
  Weight: 54.5 kg

DRUGS (2)
  1. NICOTINE. [Suspect]
     Active Substance: NICOTINE
     Indication: SMOKING CESSATION THERAPY
     Route: 065
     Dates: start: 20180113
  2. NICOTINE. [Suspect]
     Active Substance: NICOTINE
     Route: 065
     Dates: start: 201801, end: 20180120

REACTIONS (4)
  - Pain [Not Recovered/Not Resolved]
  - Incorrect dose administered [Unknown]
  - Product complaint [Unknown]
  - Treatment noncompliance [Unknown]

NARRATIVE: CASE EVENT DATE: 20180120
